FAERS Safety Report 21138563 (Version 1)
Quarter: 2022Q3

REPORT INFORMATION
  Report Type: Spontaneous
  Country: US (occurrence: US)
  Receive Date: 20220727
  Receipt Date: 20220727
  Transmission Date: 20221027
  Serious: No
  Sender: FDA-Public Use
  Company Number: US-BRISTOL-MYERS SQUIBB COMPANY-2022-072624

PATIENT
  Age: 67 Year
  Sex: Female
  Weight: 92.08 kg

DRUGS (1)
  1. REVLIMID [Suspect]
     Active Substance: LENALIDOMIDE
     Indication: Follicular lymphoma
     Dosage: THERAPY GIVEN DAILY ON DAYS 2-22 OF A 28-DAY CYCLE ?ONGOING
     Route: 048
     Dates: start: 20220325

REACTIONS (2)
  - COVID-19 [Not Recovered/Not Resolved]
  - Intentional product use issue [Unknown]
